FAERS Safety Report 6268917-3 (Version None)
Quarter: 2009Q3

REPORT INFORMATION
  Report Type: 
  Country: None (occurrence: None)
  Receive Date: 20090715
  Receipt Date: 20090702
  Transmission Date: 20100115
  Serious: Yes (Hospitalization)
  Sender: FDA-Public Use
  Company Number: US-ELI_LILLY_AND_COMPANY-US200905003421

PATIENT
  Age: 19 Year
  Sex: Female
  Weight: 63.492 kg

DRUGS (4)
  1. STRATTERA [Suspect]
     Indication: ATTENTION DEFICIT/HYPERACTIVITY DISORDER
     Dosage: 80 MG, EACH MORNING
     Route: 065
     Dates: start: 20060101
  2. CONTRACEPTIVES NOS [Concomitant]
     Indication: ORAL CONTRACEPTION
     Dosage: UNK, DAILY (1/D)
     Route: 065
  3. EXCEDRIN [Concomitant]
     Indication: MIGRAINE
     Dosage: UNK, AS NEEDED
     Route: 065
  4. SINGULAIR [Concomitant]
     Dosage: 10 MG, DAILY (1/D)
     Route: 065

REACTIONS (6)
  - ABDOMINAL DISCOMFORT [None]
  - HAND DEFORMITY [None]
  - HEADACHE [None]
  - MYOCLONUS [None]
  - SINUSITIS [None]
  - SPEECH DISORDER [None]
